FAERS Safety Report 22526327 (Version 6)
Quarter: 2024Q4

REPORT INFORMATION
  Report Type: Report from Study
  Country: BR (occurrence: BR)
  Receive Date: 20230606
  Receipt Date: 20241126
  Transmission Date: 20250115
  Serious: Yes (Other)
  Sender: TAKEDA
  Company Number: BR-TAKEDA-2022TUS065525

PATIENT
  Age: 62 Year
  Sex: Female

DRUGS (7)
  1. VEDOLIZUMAB [Suspect]
     Active Substance: VEDOLIZUMAB
     Indication: Colitis ulcerative
     Dosage: 300 MILLIGRAM
  2. VEDOLIZUMAB [Suspect]
     Active Substance: VEDOLIZUMAB
     Dosage: 300 MILLIGRAM
  3. FORMOTEROL FUMARATE [Concomitant]
     Active Substance: FORMOTEROL FUMARATE
     Indication: Bronchiectasis
     Dosage: UNK UNK, QD
  4. CARBAMAZEPINE [Concomitant]
     Active Substance: CARBAMAZEPINE
     Dosage: UNK
  5. FLUOXETINE [Concomitant]
     Active Substance: FLUOXETINE HYDROCHLORIDE
     Dosage: UNK UNK, QD
  6. CLONAZEPAM [Concomitant]
     Active Substance: CLONAZEPAM
     Dosage: UNK UNK, QD
  7. CALCIUM [Concomitant]
     Active Substance: CALCIUM
     Dosage: UNK UNK, QD

REACTIONS (7)
  - Pneumonia [Recovered/Resolved]
  - COVID-19 [Unknown]
  - Lung disorder [Recovered/Resolved]
  - Product availability issue [Unknown]
  - Inappropriate schedule of product administration [Unknown]
  - Influenza [Unknown]
  - General physical health deterioration [Recovered/Resolved]

NARRATIVE: CASE EVENT DATE: 20220717
